FAERS Safety Report 10186821 (Version 7)
Quarter: 2015Q3

REPORT INFORMATION
  Report Type: Report from Study
  Country: IT (occurrence: IT)
  Receive Date: 20140522
  Receipt Date: 20150817
  Transmission Date: 20151125
  Serious: Yes (Other)
  Sender: FDA-Public Use
  Company Number: PHHY2014IT060368

PATIENT
  Age: 34 Year
  Sex: Female

DRUGS (2)
  1. OFLOXACIN OTIC [Concomitant]
     Active Substance: OFLOXACIN
     Indication: CONJUNCTIVITIS
     Dosage: UNK
     Route: 065
     Dates: start: 20140720, end: 20140730
  2. GILENYA [Suspect]
     Active Substance: FINGOLIMOD HYDROCHLORIDE
     Indication: MULTIPLE SCLEROSIS
     Dosage: 0.5 MG, QD
     Route: 048
     Dates: start: 20121220

REACTIONS (4)
  - Vaginal infection [Recovered/Resolved]
  - Cystitis haemorrhagic [Recovered/Resolved]
  - Vaginal infection [Recovered/Resolved]
  - Cystitis haemorrhagic [Recovered/Resolved]

NARRATIVE: CASE EVENT DATE: 20130814
